FAERS Safety Report 10471053 (Version 1)
Quarter: 2014Q3

REPORT INFORMATION
  Report Type: Spontaneous
  Country: US (occurrence: None)
  Receive Date: 20140917
  Receipt Date: 20140917
  Transmission Date: 20150326
  Serious: No
  Sender: FDA-Public Use
  Company Number: 2014CT000119

PATIENT
  Age: 70 Year
  Sex: Male

DRUGS (7)
  1. FLOMAX [Concomitant]
     Active Substance: TAMSULOSIN HYDROCHLORIDE
  2. LIPITOR [Concomitant]
     Active Substance: ATORVASTATIN CALCIUM
  3. HYDROCHLOROTHIAZIDE. [Concomitant]
     Active Substance: HYDROCHLOROTHIAZIDE
  4. KORLYM [Suspect]
     Active Substance: MIFEPRISTONE
     Indication: CUSHING^S SYNDROME
     Route: 048
     Dates: start: 2014
  5. CLONAZEPAM. [Concomitant]
     Active Substance: CLONAZEPAM
  6. AVAPRO [Concomitant]
     Active Substance: IRBESARTAN
  7. TRAZODONE [Concomitant]
     Active Substance: TRAZODONE HYDROCHLORIDE

REACTIONS (5)
  - Disturbance in attention [None]
  - Malaise [None]
  - Feeling jittery [None]
  - Nausea [None]
  - Nervousness [None]

NARRATIVE: CASE EVENT DATE: 20140725
